FAERS Safety Report 12167105 (Version 1)
Quarter: 2016Q1

REPORT INFORMATION
  Report Type: Spontaneous
  Country: US (occurrence: None)
  Receive Date: 20160309
  Receipt Date: 20160309
  Transmission Date: 20160526
  Serious: Yes (Disabling)
  Sender: FDA-Public Use
  Company Number: None

PATIENT
  Age: 48 Year
  Sex: Male
  Weight: 79.38 kg

DRUGS (5)
  1. PROZAC [Concomitant]
     Active Substance: FLUOXETINE HYDROCHLORIDE
  2. MULTI VITAMIN [Concomitant]
     Active Substance: VITAMINS
  3. PRINIVIL [Concomitant]
     Active Substance: LISINOPRIL
  4. METOPROLOL. [Concomitant]
     Active Substance: METOPROLOL
  5. ARIPIPRAZOLE 15 MG [Suspect]
     Active Substance: ARIPIPRAZOLE
     Indication: DEPRESSION
     Dosage: 1 PILL DAY ONCE DAILY TAKEN BY MOUTH
     Route: 048
     Dates: start: 20160211, end: 20160228

REACTIONS (1)
  - Restless legs syndrome [None]

NARRATIVE: CASE EVENT DATE: 20160218
